FAERS Safety Report 14907356 (Version 1)
Quarter: 2018Q2

REPORT INFORMATION
  Report Type: Spontaneous
  Country: FR (occurrence: FR)
  Receive Date: 20180517
  Receipt Date: 20180517
  Transmission Date: 20180711
  Serious: Yes (Other)
  Sender: FDA-Public Use
  Company Number: FR-MERCK KGAA-2047978

PATIENT
  Sex: Female

DRUGS (1)
  1. NOVOTHYROX [Suspect]
     Active Substance: LEVOTHYROXINE SODIUM
     Indication: HYPOTHYROIDISM

REACTIONS (43)
  - Weight increased [None]
  - Eye disorder [None]
  - Premature ageing [None]
  - Photosensitivity reaction [None]
  - Blood cholesterol increased [None]
  - Balance disorder [None]
  - Impaired driving ability [None]
  - Disturbance in attention [None]
  - Urinary incontinence [None]
  - Depression [None]
  - Decreased activity [None]
  - Eye irritation [Not Recovered/Not Resolved]
  - Muscle disorder [None]
  - Myalgia [None]
  - Gingival pain [None]
  - Aggression [None]
  - Anxiety [None]
  - Emotional distress [None]
  - Photophobia [None]
  - Amnesia [None]
  - Asthenia [None]
  - Angina pectoris [None]
  - Musculoskeletal chest pain [None]
  - Pain in extremity [None]
  - Dizziness [None]
  - Gait disturbance [None]
  - Loss of personal independence in daily activities [None]
  - Affective disorder [None]
  - Muscle spasms [None]
  - Headache [None]
  - Fatigue [None]
  - Anal incontinence [None]
  - Paraesthesia [None]
  - Visual impairment [None]
  - Pain [None]
  - Psychiatric symptom [None]
  - Hyperhidrosis [None]
  - Gastrointestinal disorder [None]
  - Dyspepsia [None]
  - Pain in jaw [None]
  - Irritability [None]
  - Insomnia [None]
  - Alopecia [None]
